APPROVED DRUG PRODUCT: CEFPODOXIME PROXETIL
Active Ingredient: CEFPODOXIME PROXETIL
Strength: EQ 100MG BASE
Dosage Form/Route: TABLET;ORAL
Application: A065083 | Product #001
Applicant: SUN PHARMACEUTICAL INDUSTRIES LTD
Approved: Aug 20, 2003 | RLD: No | RS: No | Type: DISCN